FAERS Safety Report 8255600-8 (Version None)
Quarter: 2012Q2

REPORT INFORMATION
  Report Type: 
  Country: None (occurrence: None)
  Receive Date: 20120403
  Receipt Date: 20120323
  Transmission Date: 20120825
  Serious: Yes (Other)
  Sender: FDA-Public Use
  Company Number: PHHY2012BR026076

PATIENT
  Sex: Female

DRUGS (8)
  1. ATENOLOL [Concomitant]
     Dosage: 4 DF, UNK
  2. RASILEZ [Suspect]
     Indication: HYPERTENSION
     Dosage: 1 DF, UNK
     Route: 048
     Dates: start: 20101201
  3. FUROSEMIDE [Concomitant]
  4. SPIRONOLACTONE [Concomitant]
     Dosage: 1 DF
     Dates: start: 20101201
  5. CLONAZEPAM [Concomitant]
     Dosage: 2 MG, 1 TABLET AT NIGHT, FOR ABOUT 2 YEARS
  6. PARACETAMOL WITH CODEINE PHOSPHATE [Concomitant]
     Indication: HEADACHE
     Dosage: 30 MG, UNK
  7. RASILEZ [Suspect]
     Indication: ANGINA PECTORIS
  8. AMILORIDE HYDROCHLORIDE [Concomitant]

REACTIONS (5)
  - MALAISE [None]
  - BLOOD PRESSURE INCREASED [None]
  - OEDEMA PERIPHERAL [None]
  - DIABETES MELLITUS [None]
  - ERYTHEMA [None]
